FAERS Safety Report 5903677-4 (Version None)
Quarter: 2008Q3

REPORT INFORMATION
  Report Type: 
  Country: None (occurrence: None)
  Receive Date: 20080930
  Receipt Date: 20080918
  Transmission Date: 20090109
  Serious: Yes (Disabling)
  Sender: FDA-Public Use
  Company Number: GB-PFIZER INC-2008079709

PATIENT
  Age: 57 Year
  Sex: Female

DRUGS (9)
  1. GABAPENTIN [Suspect]
     Indication: NEURALGIA
     Route: 048
  2. ELOXATIN [Suspect]
     Indication: NEOPLASM MALIGNANT
     Route: 042
     Dates: start: 20050315, end: 20050830
  3. FLUOROURACIL [Concomitant]
     Indication: GASTROINTESTINAL CARCINOMA
     Route: 042
     Dates: start: 20050315, end: 20050830
  4. FOLIC ACID [Concomitant]
     Indication: COLON CANCER
     Route: 042
     Dates: start: 20050315, end: 20050830
  5. PREMIQUE [Concomitant]
  6. MULTI-VITAMINS [Concomitant]
  7. VITAMIN B6 [Concomitant]
  8. FEXOFENADINE [Concomitant]
  9. ALL OTHER THERAPEUTIC PRODUCTS [Concomitant]
     Indication: MENOPAUSE

REACTIONS (8)
  - ARTHRALGIA [None]
  - DEPRESSED MOOD [None]
  - GASTRIC HYPOMOTILITY [None]
  - NEUROPATHY PERIPHERAL [None]
  - PAIN [None]
  - PAIN IN EXTREMITY [None]
  - PARAESTHESIA [None]
  - POLYNEUROPATHY [None]
